FAERS Safety Report 8055007 (Version 2)
Quarter: 2012Q4

REPORT INFORMATION
  Report Type: 
  Country: US (occurrence: US)
  Receive Date: 20110726
  Receipt Date: 20121218
  Transmission Date: 20130627
  Serious: Yes (Death, Other)
  Sender: FDA-Public Use
  Company Number: US-BRISTOL-MYERS SQUIBB COMPANY-15916315

PATIENT
  Age: 13 Year
  Sex: Female

DRUGS (2)
  1. ABILIFY [Suspect]
     Indication: BIPOLAR DISORDER
  2. BENZONATATE [Concomitant]
     Indication: COUGH

REACTIONS (4)
  - Sudden cardiac death [Fatal]
  - Fatigue [Unknown]
  - Ear infection [Unknown]
  - Cough [Fatal]
